FAERS Safety Report 13895521 (Version 1)
Quarter: 2017Q3

REPORT INFORMATION
  Report Type: Spontaneous
  Country: DZ (occurrence: DZ)
  Receive Date: 20170819
  Receipt Date: 20170819
  Transmission Date: 20171127
  Serious: Yes (Other)
  Sender: FDA-Public Use
  Company Number: None

PATIENT
  Age: 48 Year
  Sex: Male
  Weight: 110.25 kg

DRUGS (1)
  1. PRAVASTATIN. [Suspect]
     Active Substance: PRAVASTATIN
     Indication: BLOOD CHOLESTEROL INCREASED
     Dosage: ?          QUANTITY:30 TABLET(S);?
     Route: 048
     Dates: start: 20170101, end: 20170601

REACTIONS (6)
  - Myalgia [None]
  - Blood creatine phosphokinase increased [None]
  - Gastric disorder [None]
  - Fatigue [None]
  - Mood altered [None]
  - Hypotonia [None]

NARRATIVE: CASE EVENT DATE: 20170607
